FAERS Safety Report 5362723-X (Version None)
Quarter: 2007Q2

REPORT INFORMATION
  Report Type: 
  Country: None (occurrence: None)
  Receive Date: 20070612
  Receipt Date: 20070122
  Transmission Date: 20071010
  Serious: Yes (Death, Hospitalization, Other)
  Sender: FDA-Public Use
  Company Number: 2006-08-0625

PATIENT
  Age: 79 Year
  Sex: Male

DRUGS (2)
  1. INTRON A [Suspect]
     Indication: RENAL CANCER METASTATIC
     Dosage: 3 MIU; TIW; IM
     Route: 030
     Dates: start: 20050815, end: 20060810
  2. EVIPROSTAT [Concomitant]

REACTIONS (8)
  - CONDITION AGGRAVATED [None]
  - DIABETES MELLITUS [None]
  - IDIOPATHIC THROMBOCYTOPENIC PURPURA [None]
  - MYELODYSPLASTIC SYNDROME [None]
  - NO THERAPEUTIC RESPONSE [None]
  - PNEUMONIA [None]
  - RENAL FAILURE [None]
  - SUBDURAL HAEMATOMA [None]
